FAERS Safety Report 16982928 (Version 1)
Quarter: 2019Q4

REPORT INFORMATION
  Report Type: Report from Study
  Country: CA (occurrence: CA)
  Receive Date: 20191101
  Receipt Date: 20191101
  Transmission Date: 20200122
  Serious: Yes (Disabling)
  Sender: FDA-Public Use
  Company Number: CA-JNJFOC-20191039952

PATIENT
  Age: 71 Year
  Sex: Male
  Weight: 101.7 kg

DRUGS (1)
  1. REMICADE [Suspect]
     Active Substance: INFLIXIMAB
     Indication: COLITIS ULCERATIVE
     Dosage: STRENGTH = 100 MG
     Route: 042
     Dates: start: 20170729

REACTIONS (2)
  - Muscle spasms [Recovered/Resolved]
  - Malaise [Recovered/Resolved]

NARRATIVE: CASE EVENT DATE: 20190829
